FAERS Safety Report 7805572-2 (Version None)
Quarter: 2011Q4

REPORT INFORMATION
  Report Type: 
  Country: None (occurrence: None)
  Receive Date: 20111010
  Receipt Date: 20111004
  Transmission Date: 20120403
  Serious: Yes (Life-Threatening, Hospitalization)
  Sender: FDA-Public Use
  Company Number: US-ASTRAZENECA-2011SE22509

PATIENT
  Age: 43 Year
  Sex: Male

DRUGS (1)
  1. NEXIUM [Suspect]
     Route: 048

REACTIONS (6)
  - COMA [None]
  - INTESTINAL PERFORATION [None]
  - MALAISE [None]
  - COMMUNICATION DISORDER [None]
  - SEPTIC SHOCK [None]
  - INTESTINAL OBSTRUCTION [None]
